FAERS Safety Report 4330640-X (Version None)
Quarter: 2004Q2

REPORT INFORMATION
  Report Type: 
  Country: None (occurrence: None)
  Receive Date: 20040402
  Receipt Date: 20040218
  Transmission Date: 20050107
  Serious: Yes (Hospitalization, Other)
  Sender: FDA-Public Use
  Company Number: US-GLAXOSMITHKLINE-A0498769A

PATIENT
  Age: 55 Year
  Sex: Female

DRUGS (4)
  1. AVANDIA [Suspect]
     Indication: DIABETES MELLITUS NON-INSULIN-DEPENDENT
     Route: 048
     Dates: start: 20000101
  2. GLUCOPHAGE [Concomitant]
  3. LIPITOR [Concomitant]
  4. LISINOPRIL [Concomitant]

REACTIONS (10)
  - ARTERIOSPASM CORONARY [None]
  - CHEST PAIN [None]
  - DIFFICULTY IN WALKING [None]
  - DILATATION VENTRICULAR [None]
  - DYSPNOEA [None]
  - GENITAL CYST [None]
  - OEDEMA [None]
  - OEDEMA PERIPHERAL [None]
  - SWELLING [None]
  - WEIGHT INCREASED [None]
